FAERS Safety Report 24854277 (Version 2)
Quarter: 2025Q1

REPORT INFORMATION
  Report Type: Spontaneous
  Country: JP (occurrence: JP)
  Receive Date: 20250117
  Receipt Date: 20250204
  Transmission Date: 20250408
  Serious: Yes (Death, Hospitalization, Other)
  Sender: GLAXOSMITHKLINE
  Company Number: JP-GSKJP-JP2025JPN004540AA

PATIENT

DRUGS (8)
  1. LAMICTAL [Suspect]
     Active Substance: LAMOTRIGINE
  2. LAMICTAL [Suspect]
     Active Substance: LAMOTRIGINE
  3. AMLODIPINE [Concomitant]
     Active Substance: AMLODIPINE BESYLATE
  4. CANDESARTAN [Concomitant]
     Active Substance: CANDESARTAN
  5. ARIPIPRAZOLE [Concomitant]
     Active Substance: ARIPIPRAZOLE
  6. ESZOPICLONE [Concomitant]
     Active Substance: ESZOPICLONE
  7. CLOXAZOLAM [Concomitant]
     Active Substance: CLOXAZOLAM
  8. ESCITALOPRAM [Concomitant]
     Active Substance: ESCITALOPRAM OXALATE

REACTIONS (3)
  - Hepatic failure [Fatal]
  - Drug reaction with eosinophilia and systemic symptoms [Unknown]
  - Hypogammaglobulinaemia [Unknown]
